FAERS Safety Report 24951721 (Version 3)
Quarter: 2025Q1

REPORT INFORMATION
  Report Type: Spontaneous
  Country: US (occurrence: US)
  Receive Date: 20250210
  Receipt Date: 20250303
  Transmission Date: 20250409
  Serious: Yes (Other)
  Sender: PFIZER
  Company Number: US-PFIZER INC-PV202500014714

PATIENT
  Age: 80 Year
  Sex: Male

DRUGS (3)
  1. IBRANCE [Suspect]
     Active Substance: PALBOCICLIB
     Indication: Breast cancer male
     Route: 048
  2. FASLODEX [Concomitant]
     Active Substance: FULVESTRANT
  3. LUPRON [Concomitant]
     Active Substance: LEUPROLIDE ACETATE

REACTIONS (2)
  - Neutropenia [Unknown]
  - Thrombocytopenia [Unknown]
